FAERS Safety Report 7166304-7 (Version None)
Quarter: 2010Q4

REPORT INFORMATION
  Report Type: 
  Country: None (occurrence: None)
  Receive Date: 20101202
  Receipt Date: 20101119
  Transmission Date: 20110411
  Serious: Yes (Death, Hospitalization)
  Sender: FDA-Public Use
  Company Number: TRP_07402_2010

PATIENT
  Age: 63 Year
  Sex: Male

DRUGS (3)
  1. RIBAVIRIN [Suspect]
     Indication: HEPATITIS C
     Dosage: (DF [DAILY WEIGHT BASED])
  2. PEGINTERFERON ALFA-2A [Suspect]
     Indication: HEPATITIS C
     Dosage: (270-360 MCG/WEEK)
  3. PEG-INTRON [Suspect]
     Indication: HEPATITIS C
     Dosage: (2.0-3.0 MCG/KG/WEEK)

REACTIONS (4)
  - GASTROINTESTINAL INFECTION [None]
  - NEUTROPENIA [None]
  - NO THERAPEUTIC RESPONSE [None]
  - SEPSIS [None]
